FAERS Safety Report 22156296 (Version 2)
Quarter: 2023Q2

REPORT INFORMATION
  Report Type: Spontaneous
  Country: US (occurrence: US)
  Receive Date: 20230330
  Receipt Date: 20230417
  Transmission Date: 20230722
  Serious: No
  Sender: FDA-Public Use
  Company Number: US-SA-SAC20230328001051

PATIENT
  Age: 4 Year
  Sex: Female

DRUGS (1)
  1. DUPIXENT [Suspect]
     Active Substance: DUPILUMAB
     Indication: Dermatitis atopic
     Dosage: UNK UNK, QOW
     Route: 058
     Dates: start: 202209

REACTIONS (4)
  - Cough [Unknown]
  - Fear of injection [Recovering/Resolving]
  - Vomiting [Unknown]
  - Asthma [Unknown]

NARRATIVE: CASE EVENT DATE: 20230301
